FAERS Safety Report 8603641-0 (Version None)
Quarter: 2012Q3

REPORT INFORMATION
  Report Type: 
  Country: None (occurrence: None)
  Receive Date: 20120817
  Receipt Date: 20120808
  Transmission Date: 20120928
  Serious: No
  Sender: FDA-Public Use
  Company Number: US-ASTRAZENECA-2011SE21227

PATIENT
  Age: 53 Year
  Sex: Female

DRUGS (1)
  1. TOPROL-XL [Suspect]
     Route: 048
     Dates: start: 20050101

REACTIONS (4)
  - SINUS DISORDER [None]
  - DISTURBANCE IN ATTENTION [None]
  - ABASIA [None]
  - MULTIPLE ALLERGIES [None]
